FAERS Safety Report 9508219 (Version 1)
Quarter: 2013Q3

REPORT INFORMATION
  Report Type: Spontaneous
  Country: US (occurrence: US)
  Receive Date: 20130909
  Receipt Date: 20130909
  Transmission Date: 20140515
  Serious: No
  Sender: FDA-Public Use
  Company Number: US-PFIZER INC-2013255594

PATIENT
  Age: 7 Year
  Sex: 0

DRUGS (2)
  1. MOTRIN IB [Suspect]
     Indication: PYREXIA
     Dosage: UNK
     Route: 048
  2. TYLENOL [Suspect]
     Indication: PYREXIA
     Dosage: UNK

REACTIONS (1)
  - Drug ineffective [Unknown]
